FAERS Safety Report 25180525 (Version 1)
Quarter: 2025Q2

REPORT INFORMATION
  Report Type: Spontaneous
  Country: US (occurrence: None)
  Receive Date: 20250409
  Receipt Date: 20250409
  Transmission Date: 20250716
  Serious: Yes (Hospitalization)
  Sender: FDA-CTU
  Company Number: None

PATIENT
  Age: 72 Year
  Sex: Male
  Weight: 83.91 kg

DRUGS (16)
  1. RASAGILINE [Suspect]
     Active Substance: RASAGILINE
     Indication: Parkinsonism
     Route: 048
     Dates: start: 20250205, end: 20250223
  2. AZELASTINE HCL-137 [Concomitant]
  3. FLUTICASONE SPRAY 50 MCG [Concomitant]
  4. MONTELUKAST SODIUM [Concomitant]
     Active Substance: MONTELUKAST SODIUM
  5. PRIMIDONE 300 MG A DAY [Concomitant]
  6. ROSUVASTATIN [Concomitant]
     Active Substance: ROSUVASTATIN
  7. TAMSULOSIN HCL-0.4 MG [Concomitant]
  8. ZOLPIDEM ER- 12.5MG [Concomitant]
  9. SUPPLEMENTS-Fiber [Concomitant]
  10. SUPPLEMENTAL - EG A DAY [Concomitant]
  11. FISH OIL-1400 [Concomitant]
  12. SACCHAROMYCES CEREVISIAE [Concomitant]
     Active Substance: SACCHAROMYCES CEREVISIAE
  13. IRON [Concomitant]
     Active Substance: IRON
  14. CHELATED- 18 MG [Concomitant]
  15. MACULAR ASSIST [Concomitant]
  16. SUPER ENYMES [Concomitant]

REACTIONS (7)
  - Nausea [None]
  - Vomiting [None]
  - Dysstasia [None]
  - Slow speech [None]
  - Blood pressure increased [None]
  - Heart rate decreased [None]
  - Dry mouth [None]

NARRATIVE: CASE EVENT DATE: 20250221
